FAERS Safety Report 4759504-4 (Version None)
Quarter: 2005Q3

REPORT INFORMATION
  Report Type: 
  Country: None (occurrence: None)
  Receive Date: 20050831
  Receipt Date: 20050823
  Transmission Date: 20060218
  Serious: Yes (Death)
  Sender: FDA-Public Use
  Company Number: 163-20785-05030345

PATIENT
  Age: 81 Year
  Sex: Male

DRUGS (1)
  1. THALOMID [Suspect]
     Indication: MYELODYSPLASTIC SYNDROME
     Dosage: 100 MG, DAILY, ORAL
     Route: 048
     Dates: start: 20040830, end: 20041116

REACTIONS (1)
  - ACUTE MYELOID LEUKAEMIA [None]
